FAERS Safety Report 17902235 (Version 8)
Quarter: 2022Q2

REPORT INFORMATION
  Report Type: Report from Study
  Country: FR (occurrence: FR)
  Receive Date: 20200616
  Receipt Date: 20220615
  Transmission Date: 20220721
  Serious: Yes (Hospitalization)
  Sender: FDA-Public Use
  Company Number: FR-ABBVIE-20P-056-3391632-00

PATIENT
  Age: 16 Year
  Sex: Male
  Weight: 38.5 kg

DRUGS (24)
  1. VENETOCLAX [Suspect]
     Active Substance: VENETOCLAX
     Indication: Recurrent cancer
     Route: 048
     Dates: start: 20200122, end: 20200122
  2. VENETOCLAX [Suspect]
     Active Substance: VENETOCLAX
     Indication: Refractory cancer
     Dosage: DAYS 1-10 OF EACH 21-DAY CYCLE
     Route: 048
     Dates: start: 20200123, end: 20200527
  3. VENETOCLAX [Suspect]
     Active Substance: VENETOCLAX
     Dosage: DAYS 1-10 OF EACH 21-DAY CYCLE
     Route: 048
     Dates: start: 20200608
  4. CYCLOPHOSPHAMIDE [Suspect]
     Active Substance: CYCLOPHOSPHAMIDE
     Indication: Refractory cancer
     Dosage: GIVEN FOR 5 DAYS EVERY 21 DAYS
     Route: 042
     Dates: start: 20200124, end: 20200424
  5. CYCLOPHOSPHAMIDE [Suspect]
     Active Substance: CYCLOPHOSPHAMIDE
     Indication: Recurrent cancer
     Route: 042
     Dates: start: 20200518, end: 20200522
  6. CYCLOPHOSPHAMIDE [Suspect]
     Active Substance: CYCLOPHOSPHAMIDE
     Dosage: GIVEN FOR 4 DAYS EVERY 21 DAYS
     Route: 042
     Dates: start: 20200608
  7. TOPOTECAN HYDROCHLORIDE [Suspect]
     Active Substance: TOPOTECAN HYDROCHLORIDE
     Indication: Recurrent cancer
     Dosage: GIVEN FOR 5 DAYS EVERY 21 DAYS
     Route: 042
     Dates: start: 20200124, end: 20200424
  8. TOPOTECAN HYDROCHLORIDE [Suspect]
     Active Substance: TOPOTECAN HYDROCHLORIDE
     Indication: Refractory cancer
     Route: 042
     Dates: start: 20200518, end: 20200522
  9. TOPOTECAN HYDROCHLORIDE [Suspect]
     Active Substance: TOPOTECAN HYDROCHLORIDE
     Dosage: GIVEN FOR 4 DAYS EVERY 21 DAYS
     Route: 042
     Dates: start: 20200608
  10. POLYETHYLENE GLYCOL 4000 [Concomitant]
     Active Substance: POLYETHYLENE GLYCOL 4000
     Indication: Constipation
     Dosage: 10 OR 20 MG
     Route: 048
     Dates: start: 20200122
  11. CYMBALTA [Concomitant]
     Active Substance: DULOXETINE HYDROCHLORIDE
     Indication: Neuralgia
     Route: 048
     Dates: start: 20200121
  12. LYRICA [Concomitant]
     Active Substance: PREGABALIN
     Indication: Neuralgia
     Route: 048
     Dates: start: 20200121
  13. PANTOPRAZOLE [Concomitant]
     Active Substance: PANTOPRAZOLE
     Indication: Prophylaxis
     Route: 048
     Dates: start: 20200121
  14. FILGRASTIM [Concomitant]
     Active Substance: FILGRASTIM
     Indication: Prophylaxis
     Dosage: 1 AMPULE Q 2 DAYS, SUB-Q INJECTION 10 DAYS EVERY 21 DAYS
     Route: 058
     Dates: start: 20200129
  15. HYDROCORTISONE [Concomitant]
     Active Substance: HYDROCORTISONE
     Indication: Sciatica
     Dosage: 7.5 MG MORNING AND 5 MG AT 12
     Route: 048
     Dates: start: 20200223
  16. FILGRASTIM [Concomitant]
     Active Substance: FILGRASTIM
     Indication: Colony stimulating factor therapy
     Dosage: ON DAY 7 OF EACH COURSE + CONTINUE UNTIL APLASIA OVER
     Route: 042
     Dates: start: 20200129, end: 20200207
  17. FILGRASTIM [Concomitant]
     Active Substance: FILGRASTIM
     Dosage: ON DAY 7 OF EACH COURSE + CONTINUE UNTIL APLASIA OVER
     Route: 058
     Dates: start: 20200219, end: 20200227
  18. FILGRASTIM [Concomitant]
     Active Substance: FILGRASTIM
     Dosage: ON DAY 7 OF EACH COURSE + CONTINUE UNTIL APLASIA OVER
     Route: 058
     Dates: start: 20200312, end: 20200322
  19. FILGRASTIM [Concomitant]
     Active Substance: FILGRASTIM
     Dosage: ON DAY 7 OF EACH COURSE + CONTINUE UNTIL APLASIA OVER
     Route: 058
     Dates: start: 20200405, end: 20200415
  20. FILGRASTIM [Concomitant]
     Active Substance: FILGRASTIM
     Dosage: ON DAY 7 OF EACH COURSE + CONTINUE UNTIL APLASIA OVER
     Route: 058
     Dates: start: 20200426
  21. ALLOPURINOL [Concomitant]
     Active Substance: ALLOPURINOL
     Indication: Prophylaxis
     Dates: start: 20200121, end: 20200130
  22. 5% DEXTROSE IN WATER [Concomitant]
     Indication: Prophylaxis
     Route: 042
     Dates: start: 20200121, end: 20200129
  23. PENTACARINAT [Concomitant]
     Active Substance: PENTAMIDINE ISETHIONATE
     Indication: Infection prophylaxis
     Route: 042
     Dates: start: 20200129
  24. SKENAN [Concomitant]
     Active Substance: MORPHINE SULFATE
     Indication: Tumour pain
     Route: 048
     Dates: start: 20200126

REACTIONS (3)
  - Lung disorder [Recovered/Resolved]
  - Cystitis haemorrhagic [Recovered/Resolved]
  - Febrile neutropenia [Recovered/Resolved]

NARRATIVE: CASE EVENT DATE: 20200504
